FAERS Safety Report 5490377-0 (Version None)
Quarter: 2007Q4

REPORT INFORMATION
  Report Type: 
  Country: None (occurrence: None)
  Receive Date: 20071019
  Receipt Date: 20071010
  Transmission Date: 20080405
  Serious: Yes (Other)
  Sender: FDA-Public Use
  Company Number: PHBS2007BR16953

PATIENT
  Age: 36 Year
  Sex: Female
  Weight: 74 kg

DRUGS (4)
  1. FLUOXETINE HYDROCHLORIDE [Concomitant]
     Indication: DEPRESSION
     Dosage: 1 DF, UNK
     Route: 048
     Dates: start: 20071010
  2. RIVOTRIL [Concomitant]
     Dosage: 14 DROP/DAY
     Route: 048
  3. ATENOLOL [Concomitant]
     Indication: HYPERTENSION
     Dosage: 100 MG, Q12H
  4. TRILEPTAL [Suspect]
     Indication: DEPRESSION
     Dosage: 600 MG, Q12H
     Route: 048
     Dates: start: 20071010

REACTIONS (5)
  - DIPLOPIA [None]
  - HALLUCINATION, AUDITORY [None]
  - HALLUCINATION, VISUAL [None]
  - PRURITUS GENERALISED [None]
  - UVULITIS [None]
